FAERS Safety Report 5605478-3 (Version None)
Quarter: 2008Q1

REPORT INFORMATION
  Report Type: 
  Country: None (occurrence: None)
  Receive Date: 20080129
  Receipt Date: 20080128
  Transmission Date: 20080703
  Serious: Yes (Other)
  Sender: FDA-Public Use
  Company Number: JP-BRISTOL-MYERS SQUIBB COMPANY-13990767

PATIENT
  Age: 65 Year
  Sex: Male

DRUGS (6)
  1. TAXOL [Suspect]
     Indication: LUNG NEOPLASM MALIGNANT
     Dosage: CYCEL 1: 1ST DOSE OF CHEMOTHERAPY 100MG/BODY
     Route: 041
     Dates: start: 20071113, end: 20071113
  2. PARAPLATIN [Suspect]
     Indication: LUNG NEOPLASM MALIGNANT
     Dosage: CYCEL 1: 1ST DOSE OF CHEMOTHERAPY 300MG/BODY
     Route: 041
     Dates: start: 20071113, end: 20071113
  3. NASEA [Concomitant]
     Route: 041
     Dates: start: 20071113, end: 20071113
  4. DECADRON [Concomitant]
     Route: 041
     Dates: start: 20071113, end: 20071113
  5. ZANTAC [Concomitant]
     Route: 041
     Dates: start: 20071113, end: 20071113
  6. RESTAMIN [Concomitant]
     Route: 048
     Dates: start: 20071113, end: 20071113

REACTIONS (4)
  - BRAIN CONTUSION [None]
  - DYSKINESIA [None]
  - FAECAL INCONTINENCE [None]
  - URINARY INCONTINENCE [None]
